FAERS Safety Report 5734746-X (Version None)
Quarter: 2008Q2

REPORT INFORMATION
  Report Type: 
  Country: None (occurrence: None)
  Receive Date: 20080508
  Receipt Date: 20080508
  Transmission Date: 20081010
  Serious: Yes (Disabling)
  Sender: FDA-Public Use
  Company Number: None

PATIENT
  Age: 75 Year
  Sex: Female
  Weight: 77.1115 kg

DRUGS (1)
  1. DIGITEK 0.25MG BERTOK [Suspect]
     Indication: ATRIAL FIBRILLATION
     Dosage: 0.25 MG O.D. PO
     Route: 048
     Dates: start: 20071117, end: 20080501

REACTIONS (1)
  - PHARMACEUTICAL PRODUCT COMPLAINT [None]
